FAERS Safety Report 13778469 (Version 5)
Quarter: 2017Q4

REPORT INFORMATION
  Report Type: Report from Study
  Country: US (occurrence: US)
  Receive Date: 20170721
  Receipt Date: 20171122
  Transmission Date: 20180320
  Serious: Yes (Hospitalization, Other)
  Sender: FDA-Public Use
  Company Number: US-ACTELION-A-NJ2016-138553

PATIENT
  Age: 71 Year
  Sex: Male
  Weight: 117.46 kg

DRUGS (15)
  1. POTASSIUM [Concomitant]
     Active Substance: POTASSIUM
  2. INSULIN GLARGINE [Concomitant]
     Active Substance: INSULIN GLARGINE
  3. TYVASO [Concomitant]
     Active Substance: TREPROSTINIL
     Dosage: 30 MCG, TID
     Dates: start: 201308, end: 20160421
  4. LOSARTAN. [Concomitant]
     Active Substance: LOSARTAN
  5. DULOXETINE. [Concomitant]
     Active Substance: DULOXETINE
  6. ATORVASTATIN [Concomitant]
     Active Substance: ATORVASTATIN
  7. BUMEX [Concomitant]
     Active Substance: BUMETANIDE
  8. OPSUMIT [Suspect]
     Active Substance: MACITENTAN
     Indication: PULMONARY ARTERIAL HYPERTENSION
     Dosage: 10 MG, QD
     Route: 048
     Dates: start: 20150429
  9. TADALAFIL [Concomitant]
     Active Substance: TADALAFIL
     Dosage: 20 MG, BID
     Dates: start: 20110628
  10. WARFARIN [Concomitant]
     Active Substance: WARFARIN
  11. METOPROLOL. [Concomitant]
     Active Substance: METOPROLOL
  12. METOLAZONE. [Concomitant]
     Active Substance: METOLAZONE
  13. INSULIN ASPART [Concomitant]
     Active Substance: INSULIN ASPART
  14. ASPIRIN. [Concomitant]
     Active Substance: ASPIRIN
  15. UPTRAVI [Suspect]
     Active Substance: SELEXIPAG
     Indication: PULMONARY ARTERIAL HYPERTENSION
     Dosage: 400 MCG, BID
     Route: 048
     Dates: start: 20160407

REACTIONS (23)
  - Toe amputation [Unknown]
  - Peripheral swelling [Unknown]
  - Pulmonary oedema [Unknown]
  - Osteomyelitis [Recovered/Resolved]
  - Heart rate increased [Recovering/Resolving]
  - Hypertension [Recovered/Resolved]
  - Respiratory failure [Recovered/Resolved with Sequelae]
  - Nausea [Recovered/Resolved]
  - Diarrhoea [Recovered/Resolved]
  - Diabetic foot [Unknown]
  - Erythema [Unknown]
  - Sinus tachycardia [Recovering/Resolving]
  - Arthralgia [Recovered/Resolved]
  - Wound drainage [Unknown]
  - Blood pressure systolic decreased [Unknown]
  - Condition aggravated [Recovered/Resolved]
  - Dizziness postural [Unknown]
  - Chills [Unknown]
  - Body temperature increased [Unknown]
  - Burning sensation [Unknown]
  - Dyspnoea [Recovering/Resolving]
  - Myalgia [Recovered/Resolved]
  - Wound [Unknown]

NARRATIVE: CASE EVENT DATE: 20160408
